FAERS Safety Report 4712801-0 (Version None)
Quarter: 2005Q3

REPORT INFORMATION
  Report Type: 
  Country: None (occurrence: None)
  Receive Date: 20050708
  Receipt Date: 20050708
  Transmission Date: 20060218
  Serious: Yes (Death, Hospitalization)
  Sender: FDA-Public Use
  Company Number: None

PATIENT
  Sex: Male
  Weight: 3.6 kg

DRUGS (3)
  1. 13-CIS-RETINOIC ACID [Suspect]
     Indication: JUVENILE CHRONIC MYELOMONOCYTIC LEUKAEMIA
     Dosage: 100 MG/M2 PO QD FOR 28 DAYS, Q28D FOR 2 CYCLES
     Route: 048
     Dates: start: 20050614, end: 20050625
  2. FLUDARABINE PHOSPHATE [Suspect]
     Dosage: 30MG/M2 IV OVER 30 MIN QD ON DAYS 1-5, Q28D FOR 2 CYCLES
     Route: 042
  3. CYTARABINE [Suspect]
     Dosage: 2 G/M2 IV OVER 4 HR QD ON DAYS 1-5, Q28D FOR 2 CYCLES
     Route: 042

REACTIONS (13)
  - CARDIAC FAILURE [None]
  - CARDIAC FAILURE CONGESTIVE [None]
  - ECCHYMOSIS [None]
  - GENERALISED OEDEMA [None]
  - HYPOALBUMINAEMIA [None]
  - HYPOKALAEMIA [None]
  - PANCYTOPENIA [None]
  - PULMONARY OEDEMA [None]
  - RASH [None]
  - RESPIRATORY FAILURE [None]
  - SEPSIS [None]
  - URINE OUTPUT DECREASED [None]
  - WEIGHT INCREASED [None]
